FAERS Safety Report 20521316 (Version 2)
Quarter: 2022Q1

REPORT INFORMATION
  Report Type: Report from Study
  Country: US (occurrence: US)
  Receive Date: 20220226
  Receipt Date: 20220317
  Transmission Date: 20220423
  Serious: Yes (Other)
  Sender: FDA-Public Use
  Company Number: US-TAKEDA-2021TUS079906

PATIENT
  Age: 71 Year
  Sex: Female
  Weight: 54 kg

DRUGS (20)
  1. TEDUGLUTIDE [Suspect]
     Active Substance: TEDUGLUTIDE
     Indication: Crohn^s disease
     Dosage: 1.5 MILLIGRAM, QD
     Route: 058
     Dates: start: 202110
  2. TEDUGLUTIDE [Suspect]
     Active Substance: TEDUGLUTIDE
     Indication: Crohn^s disease
     Dosage: 1.5 MILLIGRAM, QD
     Route: 058
     Dates: start: 202110
  3. TEDUGLUTIDE [Suspect]
     Active Substance: TEDUGLUTIDE
     Indication: Crohn^s disease
     Dosage: 1.5 MILLIGRAM, QD
     Route: 058
     Dates: start: 202110
  4. TEDUGLUTIDE [Suspect]
     Active Substance: TEDUGLUTIDE
     Indication: Crohn^s disease
     Dosage: 1.5 MILLIGRAM, QD
     Route: 058
     Dates: start: 202110
  5. TEDUGLUTIDE [Suspect]
     Active Substance: TEDUGLUTIDE
     Indication: Short-bowel syndrome
     Dosage: 1.5 MILLIGRAM, QD
     Route: 058
     Dates: start: 20211015
  6. TEDUGLUTIDE [Suspect]
     Active Substance: TEDUGLUTIDE
     Indication: Short-bowel syndrome
     Dosage: 1.5 MILLIGRAM, QD
     Route: 058
     Dates: start: 20211015
  7. TEDUGLUTIDE [Suspect]
     Active Substance: TEDUGLUTIDE
     Indication: Short-bowel syndrome
     Dosage: 1.5 MILLIGRAM, QD
     Route: 058
     Dates: start: 20211015
  8. TEDUGLUTIDE [Suspect]
     Active Substance: TEDUGLUTIDE
     Indication: Short-bowel syndrome
     Dosage: 1.5 MILLIGRAM, QD
     Route: 058
     Dates: start: 20211015
  9. TEDUGLUTIDE [Suspect]
     Active Substance: TEDUGLUTIDE
     Indication: Short-bowel syndrome
     Dosage: 1.5 MILLIGRAM, QD
     Route: 058
     Dates: start: 20211014
  10. TEDUGLUTIDE [Suspect]
     Active Substance: TEDUGLUTIDE
     Indication: Short-bowel syndrome
     Dosage: 1.5 MILLIGRAM, QD
     Route: 058
     Dates: start: 20211014
  11. TEDUGLUTIDE [Suspect]
     Active Substance: TEDUGLUTIDE
     Indication: Short-bowel syndrome
     Dosage: 1.5 MILLIGRAM, QD
     Route: 058
     Dates: start: 20211014
  12. TEDUGLUTIDE [Suspect]
     Active Substance: TEDUGLUTIDE
     Indication: Short-bowel syndrome
     Dosage: 1.5 MILLIGRAM, QD
     Route: 058
     Dates: start: 20211014
  13. CARVEDILOL [Concomitant]
     Active Substance: CARVEDILOL
     Dosage: 12.5 MILLIGRAM, BID
     Route: 048
     Dates: start: 20211207
  14. CYANOCOBALAMIN [Concomitant]
     Active Substance: CYANOCOBALAMIN
     Dosage: UNK UNK, 2/MONTH
  15. FOLVITE [Concomitant]
     Active Substance: FOLIC ACID
     Dosage: 1 MILLIGRAM, QD
     Route: 048
  16. EMLA [Concomitant]
     Active Substance: LIDOCAINE\PRILOCAINE
     Dosage: UNK UNK, 3/WEEK
     Dates: start: 20220121
  17. MINERALS\VITAMINS [Concomitant]
     Active Substance: MINERALS\VITAMINS
     Dosage: 2 DOSAGE FORM, QD
     Route: 048
  18. IMODIUM [Concomitant]
     Active Substance: LOPERAMIDE HYDROCHLORIDE
     Dosage: 2 MILLIGRAM, QD
     Route: 048
  19. OMEGA-3 FATTY ACIDS [Concomitant]
     Active Substance: OMEGA-3 FATTY ACIDS
     Dosage: 1000 MILLIGRAM, BID
     Route: 048
     Dates: start: 20210909
  20. ZOFRAN [Concomitant]
     Active Substance: ONDANSETRON HYDROCHLORIDE
     Dosage: 4 MILLIGRAM, Q4HR
     Route: 048
     Dates: start: 20220119

REACTIONS (8)
  - Crohn^s disease [Unknown]
  - Injection site bruising [Unknown]
  - Blood iron decreased [Unknown]
  - Weight decreased [Unknown]
  - Abdominal distension [Unknown]
  - COVID-19 [Unknown]
  - Renal function test abnormal [Unknown]
  - Off label use [Unknown]

NARRATIVE: CASE EVENT DATE: 20220209
